FAERS Safety Report 8641799 (Version 3)
Quarter: 2015Q1

REPORT INFORMATION
  Report Type: Spontaneous
  Country: US (occurrence: US)
  Receive Date: 20120628
  Receipt Date: 20150119
  Transmission Date: 20150721
  Serious: No
  Sender: FDA-Public Use
  Company Number: US-ASTRAZENECA-2011SE14514

PATIENT
  Sex: Male

DRUGS (7)
  1. TOPROL XL [Suspect]
     Active Substance: METOPROLOL SUCCINATE
     Indication: CARDIAC DISORDER
     Route: 048
     Dates: start: 1998
  2. TOPROL XL [Suspect]
     Active Substance: METOPROLOL SUCCINATE
     Indication: CARDIAC DISORDER
     Dosage: GENERIC
     Route: 048
  3. TOPROL XL [Suspect]
     Active Substance: METOPROLOL SUCCINATE
     Indication: CARDIAC DISORDER
     Route: 048
     Dates: start: 1992
  4. TOPROL XL [Suspect]
     Active Substance: METOPROLOL SUCCINATE
     Indication: CARDIAC DISORDER
     Dosage: CUTS A TOPROL XL PILL IN HALF AND TAKES 50 MG
     Route: 048
  5. XANAX [Concomitant]
     Active Substance: ALPRAZOLAM
  6. VERAPAMIL [Concomitant]
     Active Substance: VERAPAMIL HYDROCHLORIDE
  7. VERAPAMIL [Concomitant]
     Active Substance: VERAPAMIL HYDROCHLORIDE

REACTIONS (10)
  - Intentional product misuse [Unknown]
  - Drug dose omission [Unknown]
  - Drug effect incomplete [Unknown]
  - Adverse drug reaction [Unknown]
  - Gait disturbance [Unknown]
  - Palpitations [Unknown]
  - Cardiac valve disease [Unknown]
  - Initial insomnia [Unknown]
  - Sleep disorder due to a general medical condition [Unknown]
  - Heart rate increased [Unknown]
